FAERS Safety Report 21047174 (Version 2)
Quarter: 2022Q3

REPORT INFORMATION
  Report Type: Report from Study
  Country: US (occurrence: US)
  Receive Date: 20220706
  Receipt Date: 20220912
  Transmission Date: 20221026
  Serious: Yes (Death, Hospitalization, Other)
  Sender: FDA-Public Use
  Company Number: US-BAYER-2022A079164

PATIENT
  Age: 77 Year
  Sex: Male
  Weight: 99.773 kg

DRUGS (4)
  1. ADEMPAS [Suspect]
     Active Substance: RIOCIGUAT
     Indication: Pulmonary arterial hypertension
     Dosage: UNK
     Route: 048
     Dates: start: 20170215
  2. ADEMPAS [Suspect]
     Active Substance: RIOCIGUAT
     Indication: Pulmonary hypertension
     Dosage: 1 MG, TID
     Route: 048
  3. ELIQUIS [Concomitant]
     Active Substance: APIXABAN
  4. DILTIAZEM [Concomitant]
     Active Substance: DILTIAZEM

REACTIONS (10)
  - Death [Fatal]
  - Hospitalisation [None]
  - Oedema peripheral [None]
  - Oedema peripheral [None]
  - Skin ulcer [None]
  - Ascites [None]
  - Wound infection [None]
  - Osteomyelitis [None]
  - Right ventricular failure [None]
  - General physical health deterioration [None]

NARRATIVE: CASE EVENT DATE: 20220810
